FAERS Safety Report 8889697 (Version 1)
Quarter: 2012Q4

REPORT INFORMATION
  Report Type: Spontaneous
  Country: US (occurrence: None)
  Receive Date: 20121105
  Receipt Date: 20121105
  Transmission Date: 20130627
  Serious: Yes (Life-Threatening, Hospitalization)
  Sender: FDA-Public Use
  Company Number: None

PATIENT
  Age: 60 Year
  Sex: Female

DRUGS (2)
  1. APRESOLINE [Suspect]
     Indication: HYPERTENSION
     Dosage: 50mg 3 time a day IM
     Route: 030
     Dates: start: 20120806, end: 20120814
  2. APRESOLINE [Suspect]
     Indication: HYPERTENSION
     Dosage: 100mg 3 times a day IM
     Route: 030

REACTIONS (3)
  - Dyspnoea [None]
  - Respiratory disorder [None]
  - Cardiac failure [None]
